FAERS Safety Report 10243634 (Version 2)
Quarter: 2014Q3

REPORT INFORMATION
  Report Type: Spontaneous
  Country: US (occurrence: US)
  Receive Date: 20140618
  Receipt Date: 20140717
  Transmission Date: 20150326
  Serious: No
  Sender: FDA-Public Use
  Company Number: US-PFIZER INC-2014164390

PATIENT
  Age: 78 Year
  Sex: Male
  Weight: 86.17 kg

DRUGS (2)
  1. TRIAMTERENE AND HYDROCHLOROTHIZIDE [Concomitant]
     Indication: HYPERTENSION
     Dosage: 37.5/25 MG, DAILY
  2. XALATAN [Suspect]
     Active Substance: LATANOPROST
     Indication: GLAUCOMA
     Dosage: 1 GTT (IN EACH EYE), DAILY
     Route: 047

REACTIONS (3)
  - Intraocular pressure test abnormal [Unknown]
  - Incorrect dose administered [Unknown]
  - Product dropper issue [Recovered/Resolved]
